FAERS Safety Report 7553005-6 (Version None)
Quarter: 2011Q2

REPORT INFORMATION
  Report Type: 
  Country: None (occurrence: None)
  Receive Date: 20110616
  Receipt Date: 20080827
  Transmission Date: 20111010
  Serious: Yes (Other)
  Sender: FDA-Public Use
  Company Number: US-BAYER-200839736NA

PATIENT
  Age: 66 Year
  Sex: Female
  Weight: 130 kg

DRUGS (18)
  1. CEFUROXIME SODIUM [Concomitant]
     Dosage: UNK
     Dates: start: 20070703
  2. EPINEPHRINE [Concomitant]
     Dosage: UNK
     Dates: start: 20070703
  3. HEPARIN [Concomitant]
     Dosage: UNK
     Dates: start: 20070703
  4. METHYLPREDNISOLONE [Concomitant]
     Dosage: UNK
     Dates: start: 20070703
  5. MILRINONE [Concomitant]
     Dosage: UNK
     Dates: start: 20070703
  6. TRASYLOL [Suspect]
     Indication: MITRAL VALVE REPAIR
     Dosage: 50 CC/HR INFUSION
     Route: 042
     Dates: start: 20070703, end: 20070703
  7. PLATELETS [Concomitant]
     Dosage: 3 U, ONCE
     Route: 042
     Dates: start: 20070703
  8. PLASMA [Concomitant]
     Dosage: 3 U, ONCE
     Route: 042
     Dates: start: 20070703
  9. ALBUTEROL SULFATE AUTOHALER [Concomitant]
     Dosage: 2 PUFFS/DAY
  10. VANCOMYCIN [Concomitant]
     Dosage: UNK
     Dates: start: 20070703
  11. TRASYLOL [Suspect]
     Indication: CORONARY ARTERY BYPASS
     Dosage: 200 ML, ONCE, LOADING DOSE
     Route: 042
     Dates: start: 20070703, end: 20070703
  12. HYZAAR [Concomitant]
     Dosage: 100/25 MG,ONE TABLET BY
     Route: 048
  13. NOREPINEPHRINE BITARTRATE [Concomitant]
     Dosage: UNK
     Dates: start: 20070703
  14. COUMADIN [Concomitant]
     Dosage: 5MG FOR 2 DAYSO,ONE TABLET BY MOUTH FOR TWO DAYS PER WEEK
     Route: 048
  15. COUMADIN [Concomitant]
     Dosage: 7.5MG FOR 5 DAYS, ONE TABLET BY MOUTH FIVE DAYS PER WEEK.
     Route: 048
  16. RED BLOOD CELLS [Concomitant]
     Dosage: 1 U, ONCE
     Route: 042
     Dates: start: 20070703
  17. TRASYLOL [Suspect]
     Indication: AORTIC VALVE REPLACEMENT
  18. MANNITOL [Concomitant]
     Dosage: UNK
     Dates: start: 20070703

REACTIONS (4)
  - PAIN [None]
  - ANHEDONIA [None]
  - RENAL FAILURE [None]
  - INJURY [None]
